FAERS Safety Report 8398675 (Version 2)
Quarter: 2012Q4

REPORT INFORMATION
  Report Type: 
  Country: JP (occurrence: JP)
  Receive Date: 20120209
  Receipt Date: 20121024
  Transmission Date: 20130627
  Serious: Yes (Other)
  Sender: FDA-Public Use
  Company Number: PHHY2012JP008167

PATIENT
  Age: 1 Day
  Sex: Male

DRUGS (6)
  1. NATEGLINIDE [Suspect]
     Indication: GLUCOSE TOLERANCE IMPAIRED
     Dosage: 90 mg
     Route: 048
     Dates: start: 201010, end: 20110512
  2. RIVOTRIL [Concomitant]
     Indication: EPILEPSY
     Dosage: 0.5 mg
     Dates: end: 20110512
  3. TOPIRAMATE [Concomitant]
     Dosage: 300 mg
     Dates: start: 201101
  4. DEPAKENE-R [Concomitant]
     Dosage: 400 mg
     Dates: start: 199509
  5. FOLIAMIN [Concomitant]
  6. INSULIN [Concomitant]
     Dates: start: 201108

REACTIONS (4)
  - Palatal disorder [Unknown]
  - Cleft palate [Unknown]
  - Respiratory disorder [Recovering/Resolving]
  - Foetal exposure during pregnancy [Unknown]
